FAERS Safety Report 20554452 (Version 2)
Quarter: 2022Q1

REPORT INFORMATION
  Report Type: Spontaneous
  Country: US (occurrence: None)
  Receive Date: 20220304
  Receipt Date: 20220311
  Transmission Date: 20220424
  Serious: Yes (Hospitalization)
  Sender: FDA-Public Use
  Company Number: 2022A089753

PATIENT
  Age: 68 Year
  Sex: Male
  Weight: 61.2 kg

DRUGS (4)
  1. BUDESONIDE\FORMOTEROL\GLYCOPYRRONIUM [Suspect]
     Active Substance: BUDESONIDE\FORMOTEROL\GLYCOPYRRONIUM
     Indication: Chronic obstructive pulmonary disease
     Route: 055
     Dates: start: 2021
  2. SYMBICORT [Suspect]
     Active Substance: BUDESONIDE\FORMOTEROL FUMARATE DIHYDRATE
     Indication: Chronic obstructive pulmonary disease
     Dosage: SYMBICORT 160/4.5 MCG TWO PUFFS TWICE A DAY
     Route: 055
     Dates: end: 2021
  3. ALBUTEROL [Concomitant]
     Active Substance: ALBUTEROL
     Dosage: 3 MG.
  4. IPRATROPIUM [Concomitant]
     Active Substance: IPRATROPIUM
     Dosage: 5 MG

REACTIONS (8)
  - Gastrointestinal disorder [Recovered/Resolved]
  - Disease complication [Recovered/Resolved]
  - Dyspnoea [Not Recovered/Not Resolved]
  - Oxygen saturation decreased [Not Recovered/Not Resolved]
  - Drug effect less than expected [Unknown]
  - Wrong technique in product usage process [Recovered/Resolved]
  - Device use issue [Recovered/Resolved]
  - Device delivery system issue [Unknown]

NARRATIVE: CASE EVENT DATE: 20210101
